FAERS Safety Report 10232612 (Version 1)
Quarter: 2014Q2

REPORT INFORMATION
  Report Type: Spontaneous
  Country: US (occurrence: None)
  Receive Date: 20140611
  Receipt Date: 20140611
  Transmission Date: 20141212
  Serious: Yes (Disabling, Other)
  Sender: FDA-Public Use
  Company Number: None

PATIENT
  Age: 18 Year
  Sex: Male
  Weight: 68.04 kg

DRUGS (1)
  1. MEFLOQUINE [Suspect]
     Indication: MALARIA PROPHYLAXIS
     Dosage: 1 PILL, WEEKLY, TAKEN BY MOUTH
     Route: 048

REACTIONS (5)
  - Hallucination [None]
  - Arthralgia [None]
  - Myalgia [None]
  - Anger [None]
  - Feeling abnormal [None]
